FAERS Safety Report 4483954-7 (Version None)
Quarter: 2004Q4

REPORT INFORMATION
  Report Type: 
  Country: None (occurrence: None)
  Receive Date: 20041025
  Receipt Date: 20041012
  Transmission Date: 20050328
  Serious: Yes (Hospitalization)
  Sender: FDA-Public Use
  Company Number: CA-BRISTOL-MYERS SQUIBB COMPANY-12730503

PATIENT
  Age: 63 Year
  Sex: Male
  Weight: 102 kg

DRUGS (1)
  1. AVALIDE [Suspect]
     Indication: HYPERTENSION
     Route: 048
     Dates: start: 20040901

REACTIONS (2)
  - BLOOD PRESSURE SYSTOLIC DECREASED [None]
  - RECTAL HAEMORRHAGE [None]
